FAERS Safety Report 10423429 (Version 1)
Quarter: 2014Q3

REPORT INFORMATION
  Report Type: Spontaneous
  Country: US (occurrence: US)
  Receive Date: 20140902
  Receipt Date: 20140902
  Transmission Date: 20150326
  Serious: Yes (Other)
  Sender: FDA-Public Use
  Company Number: US-PFIZER INC-2014236231

PATIENT
  Age: 41 Year
  Sex: Female

DRUGS (2)
  1. DIPHENHYDRAMINE/DIPHENHYDRAMINE CITRATE/IBUPROFEN [Suspect]
     Active Substance: DIPHENHYDRAMINE\DIPHENHYDRAMINE CITRATE\IBUPROFEN
     Dosage: UNK, HANDFUL
  2. TRAZODONE [Suspect]
     Active Substance: TRAZODONE HYDROCHLORIDE
     Dosage: 1.5 G, UNK

REACTIONS (9)
  - Bradycardia [Recovered/Resolved]
  - Intentional overdose [Recovered/Resolved]
  - Dizziness [Recovered/Resolved]
  - Chest pain [Recovered/Resolved]
  - Somnolence [Recovered/Resolved]
  - Haemoglobin decreased [None]
  - Intentional self-injury [Recovered/Resolved]
  - Sinus bradycardia [None]
  - Intentional overdose [None]
